FAERS Safety Report 5621619-6 (Version None)
Quarter: 2008Q1

REPORT INFORMATION
  Report Type: 
  Country: None (occurrence: None)
  Receive Date: 20080211
  Receipt Date: 20080204
  Transmission Date: 20080703
  Serious: Yes (Hospitalization)
  Sender: FDA-Public Use
  Company Number: PHBS2008EE01785

PATIENT
  Age: 80 Year
  Sex: Female

DRUGS (1)
  1. FEMARA [Suspect]
     Route: 065

REACTIONS (1)
  - EOSINOPHILIC PNEUMONIA [None]
